FAERS Safety Report 4284156-X (Version None)
Quarter: 2004Q1

REPORT INFORMATION
  Report Type: 
  Country: None (occurrence: None)
  Receive Date: 20040203
  Receipt Date: 20040122
  Transmission Date: 20041129
  Serious: Yes (Hospitalization, Other)
  Sender: FDA-Public Use
  Company Number: FR-GLAXOSMITHKLINE-B0320586A

PATIENT
  Age: 42 Year
  Sex: Male

DRUGS (4)
  1. COMBIVIR [Suspect]
     Indication: HIV INFECTION
     Route: 048
  2. URBANYL [Suspect]
     Route: 065
  3. NICOPATCH [Suspect]
     Indication: EX-SMOKER
     Route: 062
     Dates: start: 20031214, end: 20031222
  4. KALETRA [Suspect]
     Indication: HIV INFECTION
     Route: 065

REACTIONS (1)
  - EPILEPSY [None]
